FAERS Safety Report 16737564 (Version 1)
Quarter: 2019Q3

REPORT INFORMATION
  Report Type: Spontaneous
  Country: GB (occurrence: VN)
  Receive Date: 20190823
  Receipt Date: 20190823
  Transmission Date: 20191005
  Serious: Yes (Other)
  Sender: FDA-Public Use
  Company Number: VN-ASTELLAS-2019US033682

PATIENT
  Age: 65 Year
  Sex: Female

DRUGS (1)
  1. ERLOTINIB [Suspect]
     Active Substance: ERLOTINIB
     Indication: LUNG ADENOCARCINOMA
     Route: 048

REACTIONS (7)
  - Acne pustular [Not Recovered/Not Resolved]
  - Postoperative abscess [Unknown]
  - Rash [Not Recovered/Not Resolved]
  - Headache [Recovering/Resolving]
  - Vision blurred [Unknown]
  - Brain oedema [Unknown]
  - Paronychia [Not Recovered/Not Resolved]

NARRATIVE: CASE EVENT DATE: 201708
